FAERS Safety Report 7177692-X (Version None)
Quarter: 2010Q4

REPORT INFORMATION
  Report Type: 
  Country: None (occurrence: None)
  Receive Date: 20101207
  Receipt Date: 20101130
  Transmission Date: 20110411
  Serious: Yes (Hospitalization)
  Sender: FDA-Public Use
  Company Number: 20107880

PATIENT
  Sex: Male

DRUGS (1)
  1. LIORESAL [Suspect]
     Indication: MUSCLE SPASTICITY
     Dosage: (MCG, DAILY, INTRATHECAL
     Route: 037

REACTIONS (15)
  - BLOOD PRESSURE DIASTOLIC DECREASED [None]
  - BODY TEMPERATURE DECREASED [None]
  - CONDITION AGGRAVATED [None]
  - DEVICE CONNECTION ISSUE [None]
  - HYPOTONIA [None]
  - IMPLANT SITE EFFUSION [None]
  - INFECTION [None]
  - LOSS OF CONSCIOUSNESS [None]
  - MUSCLE RIGIDITY [None]
  - MUSCLE SPASTICITY [None]
  - PRURITUS [None]
  - REBOUND EFFECT [None]
  - THERAPEUTIC RESPONSE DECREASED [None]
  - ULCER [None]
  - URINARY TRACT INFECTION [None]
